FAERS Safety Report 8010889-5 (Version None)
Quarter: 2011Q4

REPORT INFORMATION
  Report Type: 
  Country: None (occurrence: None)
  Receive Date: 20111228
  Receipt Date: 20111128
  Transmission Date: 20120403
  Serious: Yes (Hospitalization, Other)
  Sender: FDA-Public Use
  Company Number: GB-ROCHE-GNE322546

PATIENT
  Sex: Male
  Weight: 95 kg

DRUGS (17)
  1. LUCENTIS [Suspect]
     Indication: MACULAR DEGENERATION
     Dosage: UNK UNK, UNK
     Route: 050
     Dates: start: 20090728, end: 20090825
  2. RANITIDINE [Concomitant]
  3. SLOZEM [Concomitant]
  4. PERINDOPRIL [Concomitant]
  5. XYLOPROCT [Concomitant]
  6. ACETAMINOPHEN [Concomitant]
  7. ATORVASTATIN [Concomitant]
  8. INDAPAMIDE [Concomitant]
  9. ASPIRIN AND DIPYRIDAMOLE [Concomitant]
  10. REVAXIS [Concomitant]
  11. LISINOPRIL [Concomitant]
  12. MOXONIDINE [Concomitant]
  13. LUCENTIS [Suspect]
     Dosage: UNK
     Route: 050
     Dates: start: 20090825
  14. FLUTICASONE FUROATE [Concomitant]
  15. PERINDOPRIL [Concomitant]
  16. ATENOLOL [Concomitant]
  17. OMEPRAZOLE [Concomitant]

REACTIONS (1)
  - CEREBROVASCULAR ACCIDENT [None]
